FAERS Safety Report 23774275 (Version 1)
Quarter: 2024Q2

REPORT INFORMATION
  Report Type: Spontaneous
  Country: DE (occurrence: DE)
  Receive Date: 20240423
  Receipt Date: 20240423
  Transmission Date: 20240716
  Serious: Yes (Other)
  Sender: FDA-Public Use
  Company Number: None

PATIENT
  Age: 17 Year
  Sex: Male
  Weight: 71 kg

DRUGS (1)
  1. METOCLOPRAMIDE [Suspect]
     Active Substance: METOCLOPRAMIDE
     Indication: Nausea
     Dosage: 7.5 MG, MCP,
     Route: 048
     Dates: start: 20240318, end: 20240320

REACTIONS (1)
  - Apnoea [Recovering/Resolving]

NARRATIVE: CASE EVENT DATE: 20240320
